FAERS Safety Report 5567473-2 (Version None)
Quarter: 2007Q4

REPORT INFORMATION
  Report Type: 
  Country: None (occurrence: None)
  Receive Date: 20071219
  Receipt Date: 20071217
  Transmission Date: 20080405
  Serious: Yes (Hospitalization, Other)
  Sender: FDA-Public Use
  Company Number: US-MERCK-0708USA01840

PATIENT
  Age: 71 Year
  Sex: Female
  Weight: 55 kg

DRUGS (2)
  1. FOSAMAX [Suspect]
     Indication: OSTEOPOROSIS
     Route: 048
     Dates: start: 19960101
  2. FOSAMAX [Suspect]
     Route: 048

REACTIONS (5)
  - AORTIC ANEURYSM [None]
  - ATRIAL FIBRILLATION [None]
  - ILIAC ARTERY OCCLUSION [None]
  - OSTEOMYELITIS [None]
  - OSTEONECROSIS [None]
